FAERS Safety Report 14179413 (Version 1)
Quarter: 2017Q4

REPORT INFORMATION
  Report Type: Spontaneous
  Country: US (occurrence: US)
  Receive Date: 20171110
  Receipt Date: 20171110
  Transmission Date: 20180321
  Serious: Yes (Other)
  Sender: FDA-Public Use
  Company Number: US-BAYER-2017-215654

PATIENT
  Sex: Male

DRUGS (3)
  1. ADVIL [Concomitant]
     Active Substance: IBUPROFEN
     Dosage: 600 MG, UNK
  2. BAYER ASPIRIN [Suspect]
     Active Substance: ASPIRIN
     Dosage: UNK
  3. ADVIL [Concomitant]
     Active Substance: IBUPROFEN
     Dosage: 200 MG, UNK

REACTIONS (8)
  - Haematemesis [None]
  - Malaise [None]
  - Personality change [None]
  - Adverse drug reaction [Unknown]
  - Vomiting [None]
  - Asthenia [None]
  - Dizziness [None]
  - Expired product administered [None]
